FAERS Safety Report 15794330 (Version 1)
Quarter: 2019Q1

REPORT INFORMATION
  Report Type: Spontaneous
  Country: US (occurrence: US)
  Receive Date: 20190107
  Receipt Date: 20190107
  Transmission Date: 20190417
  Serious: Yes (Hospitalization)
  Sender: FDA-Public Use
  Company Number: US-SHIRE-US201900191

PATIENT
  Age: 75 Year
  Sex: Male

DRUGS (1)
  1. GATTEX [Suspect]
     Active Substance: TEDUGLUTIDE\WATER
     Indication: SHORT-BOWEL SYNDROME
     Dosage: 0.31 UNK, 1X/DAY:QD
     Route: 065
     Dates: start: 20170901

REACTIONS (1)
  - Obstruction [Recovered/Resolved]

NARRATIVE: CASE EVENT DATE: 20181220
